FAERS Safety Report 10007409 (Version 1)
Quarter: 2014Q1

REPORT INFORMATION
  Report Type: Spontaneous
  Country: US (occurrence: None)
  Receive Date: 20140312
  Receipt Date: 20140312
  Transmission Date: 20141002
  Serious: No
  Sender: FDA-Public Use
  Company Number: None

PATIENT
  Age: 59 Year
  Sex: Male
  Weight: 74.5 kg

DRUGS (1)
  1. DIMETHYL FUMARATE [Suspect]
     Route: 048
     Dates: start: 20131211, end: 20140210

REACTIONS (3)
  - Rash [None]
  - Eructation [None]
  - Abdominal pain [None]
